FAERS Safety Report 9737174 (Version 2)
Quarter: 2013Q4

REPORT INFORMATION
  Report Type: Spontaneous
  Country: FR (occurrence: FR)
  Receive Date: 20131206
  Receipt Date: 20131225
  Transmission Date: 20140711
  Serious: Yes (Other)
  Sender: FDA-Public Use
  Company Number: FR-ROCHE-1310521

PATIENT
  Age: 41 Year
  Sex: Male

DRUGS (5)
  1. XOLAIR [Suspect]
     Indication: ASTHMA
     Route: 058
     Dates: start: 20110601
  2. MIFLONIL [Concomitant]
  3. FORADIL [Concomitant]
  4. SYMBICORT [Concomitant]
  5. VENTOLINE [Concomitant]

REACTIONS (3)
  - Lung infection [Recovered/Resolved]
  - Cytomegalovirus infection [Unknown]
  - Paronychia [Unknown]
